FAERS Safety Report 7253196-0 (Version None)
Quarter: 2011Q1

REPORT INFORMATION
  Report Type: 
  Country: None (occurrence: None)
  Receive Date: 20110129
  Receipt Date: 20100217
  Transmission Date: 20110831
  Serious: No
  Sender: FDA-Public Use
  Company Number: US-ABBOTT-10P-163-0627243-00

PATIENT
  Sex: Female
  Weight: 63.56 kg

DRUGS (1)
  1. HUMIRA [Suspect]
     Indication: RHEUMATOID ARTHRITIS
     Dates: start: 20100118

REACTIONS (6)
  - JOINT SWELLING [None]
  - HEADACHE [None]
  - ARTHRALGIA [None]
  - WEIGHT INCREASED [None]
  - ASTHENIA [None]
  - SWELLING FACE [None]
